FAERS Safety Report 25976807 (Version 1)
Quarter: 2025Q4

REPORT INFORMATION
  Report Type: Spontaneous
  Country: JP (occurrence: JP)
  Receive Date: 20251029
  Receipt Date: 20251029
  Transmission Date: 20260117
  Serious: Yes (Hospitalization, Other)
  Sender: ABBVIE
  Company Number: JP-TAKEDA-2025TJP010121

PATIENT
  Age: 70 Year
  Sex: Male

DRUGS (1)
  1. LEUPLIN [Suspect]
     Active Substance: LEUPROLIDE ACETATE
     Indication: Prostate cancer
     Dosage: LEUPLIN PRO
     Route: 065

REACTIONS (5)
  - Diverticulum intestinal haemorrhagic [Unknown]
  - Prostate cancer recurrent [Unknown]
  - Insomnia [Unknown]
  - Asthenia [Unknown]
  - Mental disorder [Recovered/Resolved]

NARRATIVE: CASE EVENT DATE: 20120101
